FAERS Safety Report 5283319-4 (Version None)
Quarter: 2007Q1

REPORT INFORMATION
  Report Type: 
  Country: None (occurrence: None)
  Receive Date: 20070328
  Receipt Date: 20070328
  Transmission Date: 20070707
  Serious: No
  Sender: FDA-Public Use
  Company Number: None

PATIENT
  Sex: Female
  Weight: 73 kg

DRUGS (1)
  1. WINRHO [Suspect]
     Indication: IDIOPATHIC THROMBOCYTOPENIC PURPURA
     Dosage: 5300 MCG IV X 1
     Route: 042
     Dates: start: 20070305

REACTIONS (7)
  - CHEST DISCOMFORT [None]
  - CHILLS [None]
  - INFUSION RELATED REACTION [None]
  - OXYGEN SATURATION DECREASED [None]
  - POOR PERIPHERAL CIRCULATION [None]
  - TREMOR [None]
  - VOMITING [None]
